FAERS Safety Report 24311850 (Version 2)
Quarter: 2024Q3

REPORT INFORMATION
  Report Type: Spontaneous
  Country: GB (occurrence: GB)
  Receive Date: 20240912
  Receipt Date: 20240923
  Transmission Date: 20241016
  Serious: Yes (Hospitalization, Other)
  Sender: MICRO LABS
  Company Number: GB-009507513-2311GBR011281

PATIENT
  Sex: Female
  Weight: 89 kg

DRUGS (57)
  1. SIMVASTATIN [Suspect]
     Active Substance: SIMVASTATIN
     Indication: Diffuse large B-cell lymphoma
     Dosage: 40 MILLIGRAM, QD
     Route: 048
     Dates: start: 20130508, end: 20240820
  2. PEMBROLIZUMAB [Suspect]
     Active Substance: PEMBROLIZUMAB
     Indication: Diffuse large B-cell lymphoma
     Dosage: 200 MILLIGRAM
     Dates: start: 20231116, end: 20231116
  3. PEMBROLIZUMAB [Suspect]
     Active Substance: PEMBROLIZUMAB
     Dosage: 200 MILLIGRAM
     Dates: start: 20231207, end: 20231207
  4. PEMBROLIZUMAB [Suspect]
     Active Substance: PEMBROLIZUMAB
     Dosage: 200 MILLIGRAM
     Dates: start: 20231229, end: 20231229
  5. RITUXIMAB [Suspect]
     Active Substance: RITUXIMAB
     Indication: Diffuse large B-cell lymphoma
     Dosage: 700 MILLIGRAM
     Dates: start: 20231116, end: 20231116
  6. RITUXIMAB [Suspect]
     Active Substance: RITUXIMAB
     Dosage: 700 MILLIGRAM
     Dates: start: 20231207, end: 20231207
  7. RITUXIMAB [Suspect]
     Active Substance: RITUXIMAB
     Dosage: 700 MILLIGRAM
     Dates: start: 20231229, end: 20231229
  8. IFOSFAMIDE [Suspect]
     Active Substance: IFOSFAMIDE
     Indication: Diffuse large B-cell lymphoma
     Dosage: 4480 MILLIGRAM
     Dates: start: 20231117, end: 20231117
  9. IFOSFAMIDE [Suspect]
     Active Substance: IFOSFAMIDE
     Dosage: 4480 MILLIGRAM
     Dates: start: 20231210, end: 20231210
  10. IFOSFAMIDE [Suspect]
     Active Substance: IFOSFAMIDE
     Dosage: 4480 MILLIGRAM
     Dates: start: 20240101, end: 20240101
  11. CARBOPLATIN [Suspect]
     Active Substance: CARBOPLATIN
     Indication: Diffuse large B-cell lymphoma
     Dosage: 450 MILLIGRAM
     Dates: start: 20231117, end: 20231117
  12. CARBOPLATIN [Suspect]
     Active Substance: CARBOPLATIN
     Indication: Diffuse large B-cell lymphoma
     Dosage: 450 MILLIGRAM
     Dates: start: 20231208, end: 20231208
  13. CARBOPLATIN [Suspect]
     Active Substance: CARBOPLATIN
     Dosage: 330 MILLIGRAM
     Dates: start: 20231230, end: 20231230
  14. ETOPOSIDE [Suspect]
     Active Substance: ETOPOSIDE
     Indication: Diffuse large B-cell lymphoma
     Dosage: 180 MILLIGRAM
     Dates: start: 20231118, end: 20231118
  15. ETOPOSIDE [Suspect]
     Active Substance: ETOPOSIDE
     Dosage: 180 MILLIGRAM
     Dates: start: 20231210, end: 20231210
  16. ETOPOSIDE [Suspect]
     Active Substance: ETOPOSIDE
     Dosage: 180 MILLIGRAM
     Dates: start: 20231231, end: 20231231
  17. ETOPOSIDE [Suspect]
     Active Substance: ETOPOSIDE
     Dosage: 296 MILLIGRAM
     Dates: start: 20240209, end: 20240214
  18. CARMUSTINE [Suspect]
     Active Substance: CARMUSTINE
     Indication: Diffuse large B-cell lymphoma
     Dosage: 400 MILLIGRAM
     Dates: start: 20240209, end: 20240214
  19. CYTARABINE [Suspect]
     Active Substance: CYTARABINE
     Indication: Diffuse large B-cell lymphoma
     Dosage: 720 MILLIGRAM
     Dates: start: 20240209, end: 20240214
  20. PLERIXAFOR [Suspect]
     Active Substance: PLERIXAFOR
     Indication: Diffuse large B-cell lymphoma
     Dosage: 20 MILLIGRAM
     Dates: start: 20240110, end: 20240111
  21. GRANULOCYTE COLONY-STIMULATING FACTOR NOS [Suspect]
     Active Substance: GRANULOCYTE COLONY-STIMULATING FACTOR NOS
     Indication: Diffuse large B-cell lymphoma
     Dosage: 30 MU
     Dates: start: 20231124, end: 20240226
  22. ACETAMINOPHEN [Suspect]
     Active Substance: ACETAMINOPHEN
     Indication: Diffuse large B-cell lymphoma
     Dosage: 1000 MILLIGRAM, QD
     Route: 048
     Dates: start: 20190520
  23. ACETAMINOPHEN [Suspect]
     Active Substance: ACETAMINOPHEN
     Dosage: TOTAL DAILY DOSE: 1000 MILLIGRAM, BID
     Route: 048
     Dates: start: 20240617
  24. DAPAGLIFLOZIN [Concomitant]
     Active Substance: DAPAGLIFLOZIN
     Dosage: 10 MILLIGRAM, QD
     Route: 048
     Dates: start: 20210113, end: 20240213
  25. DAPAGLIFLOZIN [Concomitant]
     Active Substance: DAPAGLIFLOZIN
     Indication: Product used for unknown indication
  26. GLUCOPHAGE [Concomitant]
     Active Substance: METFORMIN HYDROCHLORIDE
     Dosage: 1000 MILLIGRAM, QD
     Route: 048
     Dates: start: 20161124, end: 20240301
  27. GLUCOPHAGE [Concomitant]
     Active Substance: METFORMIN HYDROCHLORIDE
     Indication: Product used for unknown indication
  28. INDAPAMIDE [Concomitant]
     Active Substance: INDAPAMIDE
     Dosage: 2.5 MILLIGRAM, QD
     Route: 048
     Dates: start: 20180730, end: 20240208
  29. INDAPAMIDE [Concomitant]
     Active Substance: INDAPAMIDE
     Indication: Product used for unknown indication
  30. NOVORAPID [Concomitant]
     Active Substance: INSULIN ASPART
     Dosage: TOTAL DAILY DOSE: VARIABLE 100 UNITS/ML
     Route: 058
     Dates: start: 20070313, end: 20240303
  31. NOVORAPID [Concomitant]
     Active Substance: INSULIN ASPART
     Indication: Product used for unknown indication
  32. OMEPRAZOLE [Concomitant]
     Active Substance: OMEPRAZOLE
     Dosage: 20 MILLIGRAM, QD
     Route: 048
     Dates: start: 20230821, end: 20240303
  33. OMEPRAZOLE [Concomitant]
     Active Substance: OMEPRAZOLE
     Indication: Product used for unknown indication
  34. TRESIBA [Concomitant]
     Active Substance: INSULIN DEGLUDEC
     Dosage: TOTAL DAILY DOSE: VARIABLE 200 UNITS/ML
     Route: 058
     Dates: start: 20181129, end: 20240301
  35. TRESIBA [Concomitant]
     Active Substance: INSULIN DEGLUDEC
     Indication: Product used for unknown indication
  36. CHOLECALCIFEROL [Concomitant]
     Active Substance: CHOLECALCIFEROL
     Dosage: UNK
     Dates: start: 20240208, end: 20240303
  37. CHOLECALCIFEROL [Concomitant]
     Active Substance: CHOLECALCIFEROL
     Indication: Product used for unknown indication
  38. ACYCLOVIR [Concomitant]
     Active Substance: ACYCLOVIR
     Dosage: UNK
  39. ACYCLOVIR [Concomitant]
     Active Substance: ACYCLOVIR
     Indication: Product used for unknown indication
     Dosage: UNK
  40. COTRIMOXAZOLE [Concomitant]
     Active Substance: SULFAMETHOXAZOLE\TRIMETHOPRIM
     Dosage: UNK
  41. COTRIMOXAZOLE [Concomitant]
     Active Substance: SULFAMETHOXAZOLE\TRIMETHOPRIM
     Indication: Product used for unknown indication
     Dosage: UNK
  42. CODEINE PHOSPHATE [Concomitant]
     Active Substance: CODEINE PHOSPHATE
     Dosage: UNK
  43. CODEINE PHOSPHATE [Concomitant]
     Active Substance: CODEINE PHOSPHATE
     Indication: Product used for unknown indication
     Dosage: UNK
  44. FAMOTIDINE [Concomitant]
     Active Substance: FAMOTIDINE
     Dosage: UNK
  45. FAMOTIDINE [Concomitant]
     Active Substance: FAMOTIDINE
     Indication: Product used for unknown indication
     Dosage: UNK
  46. BUTYLSCOPOLAMINE BROMIDE [Concomitant]
     Active Substance: BUTYLSCOPOLAMINE BROMIDE
     Dosage: UNK
  47. BUTYLSCOPOLAMINE BROMIDE [Concomitant]
     Active Substance: BUTYLSCOPOLAMINE BROMIDE
     Indication: Product used for unknown indication
     Dosage: UNK
  48. LOPERAMIDE [Concomitant]
     Active Substance: LOPERAMIDE
     Dosage: UNK
  49. LOPERAMIDE [Concomitant]
     Active Substance: LOPERAMIDE
     Indication: Product used for unknown indication
     Dosage: UNK
  50. METFORMIN [Concomitant]
     Active Substance: METFORMIN HYDROCHLORIDE
     Dosage: UNK
  51. METFORMIN [Concomitant]
     Active Substance: METFORMIN HYDROCHLORIDE
     Indication: Product used for unknown indication
     Dosage: UNK
  52. ONDANSETRON HYDROCHLORIDE [Concomitant]
     Active Substance: ONDANSETRON HYDROCHLORIDE
     Dosage: UNK
  53. ONDANSETRON HYDROCHLORIDE [Concomitant]
     Active Substance: ONDANSETRON HYDROCHLORIDE
     Indication: Product used for unknown indication
     Dosage: UNK
  54. OXETACAINE [Concomitant]
     Active Substance: OXETHAZAINE
     Dosage: UNK
  55. OXETACAINE [Concomitant]
     Active Substance: OXETHAZAINE
     Indication: Product used for unknown indication
     Dosage: UNK
  56. POTASSIUM [Concomitant]
     Active Substance: POTASSIUM
     Dosage: UNK
  57. POTASSIUM [Concomitant]
     Active Substance: POTASSIUM
     Indication: Product used for unknown indication
     Dosage: UNK

REACTIONS (6)
  - Dyspnoea [Recovered/Resolved]
  - Acute kidney injury [Recovered/Resolved with Sequelae]
  - Acute respiratory distress syndrome [Not Recovered/Not Resolved]
  - Colitis [Recovered/Resolved with Sequelae]
  - Alanine aminotransferase increased [Not Recovered/Not Resolved]
  - Mobility decreased [Not Recovered/Not Resolved]

NARRATIVE: CASE EVENT DATE: 20231123
